FAERS Safety Report 17068135 (Version 1)
Quarter: 2019Q4

REPORT INFORMATION
  Report Type: Other
  Country: GB (occurrence: GB)
  Receive Date: 20191122
  Receipt Date: 20191122
  Transmission Date: 20200122
  Serious: Yes (Death, Hospitalization)
  Sender: FDA-Public Use
  Company Number: GB-CELLTRION INC.-2018GB021787

PATIENT

DRUGS (10)
  1. ACICLOVIR [Concomitant]
     Active Substance: ACYCLOVIR
  2. BISOPROLOL [Concomitant]
     Active Substance: BISOPROLOL
  3. RITUXIMAB (UNKNOWN) [Suspect]
     Active Substance: RITUXIMAB
     Indication: CHRONIC LYMPHOCYTIC LEUKAEMIA
     Dosage: 900 MG
     Route: 042
     Dates: start: 20180510, end: 20180717
  4. AZITHROMYCIN ANHYDROUS. [Concomitant]
     Active Substance: AZITHROMYCIN ANHYDROUS
  5. DOXYCYCLINE HYDROCHLORIDE [Concomitant]
     Active Substance: DOXYCYCLINE HYDROCHLORIDE
  6. IDELALISIB [Suspect]
     Active Substance: IDELALISIB
     Indication: CHRONIC LYMPHOCYTIC LEUKAEMIA
     Dosage: 300 MG, DAILY, CUMULATIVE DOSE: 300 MG
     Route: 048
     Dates: start: 20180510, end: 20180717
  7. ALLOPURINOL. [Concomitant]
     Active Substance: ALLOPURINOL
  8. COTRIMOXAZOLE [Concomitant]
     Active Substance: SULFAMETHOXAZOLE\TRIMETHOPRIM
  9. BUMETANIDE. [Concomitant]
     Active Substance: BUMETANIDE
  10. EDOXABAN [Concomitant]
     Active Substance: EDOXABAN TOSYLATE

REACTIONS (4)
  - Condition aggravated [Fatal]
  - Dyspnoea [Fatal]
  - Right ventricular failure [Fatal]
  - Overdose [Unknown]

NARRATIVE: CASE EVENT DATE: 20180510
